FAERS Safety Report 9730865 (Version 1)
Quarter: 2013Q4

REPORT INFORMATION
  Report Type: Spontaneous
  Country: US (occurrence: US)
  Receive Date: 20131203
  Receipt Date: 20131203
  Transmission Date: 20140711
  Serious: Yes (Other)
  Sender: FDA-Public Use
  Company Number: US-BAYER-2013-143070

PATIENT
  Age: 33 Year
  Sex: Female

DRUGS (1)
  1. MIRENA [Suspect]
     Indication: CONTRACEPTION
     Dosage: UNK
     Route: 015
     Dates: start: 20120518, end: 2013

REACTIONS (4)
  - Device dislocation [Recovered/Resolved]
  - Pain [Recovering/Resolving]
  - Ovarian cyst [Recovered/Resolved]
  - Ovarian disorder [Recovered/Resolved]
